FAERS Safety Report 5876287-5 (Version None)
Quarter: 2008Q3

REPORT INFORMATION
  Report Type: 
  Country: None (occurrence: None)
  Receive Date: 20080909
  Receipt Date: 20080909
  Transmission Date: 20090109
  Serious: Yes (Other)
  Sender: FDA-Public Use
  Company Number: None

PATIENT
  Age: 51 Year
  Sex: Female
  Weight: 77.1115 kg

DRUGS (1)
  1. NEXIUM [Suspect]
     Indication: GASTROOESOPHAGEAL REFLUX DISEASE
     Dosage: 40 MG 1 CAPSULE EVERYDAY BUCCAL
     Route: 002
     Dates: start: 20080905, end: 20080905

REACTIONS (12)
  - ABDOMINAL PAIN UPPER [None]
  - ASTHENIA [None]
  - CHEST PAIN [None]
  - COUGH [None]
  - DRY EYE [None]
  - DYSURIA [None]
  - FOREIGN BODY SENSATION IN EYES [None]
  - HYPOAESTHESIA [None]
  - MALAISE [None]
  - OEDEMA PERIPHERAL [None]
  - PARAESTHESIA [None]
  - PRURITUS GENERALISED [None]
